FAERS Safety Report 7291070-4 (Version None)
Quarter: 2011Q1

REPORT INFORMATION
  Report Type: 
  Country: None (occurrence: None)
  Receive Date: 20110214
  Receipt Date: 20110204
  Transmission Date: 20110831
  Serious: Yes (Hospitalization)
  Sender: FDA-Public Use
  Company Number: US-ASTRAZENECA-2011SE06699

PATIENT
  Age: 83 Year
  Sex: Male
  Weight: 77.1 kg

DRUGS (3)
  1. TENORMIN [Suspect]
     Indication: CARDIAC DISORDER
     Route: 048
     Dates: start: 19960101
  2. LIPITOR [Concomitant]
     Indication: BLOOD CHOLESTEROL INCREASED
  3. ASPIRIN [Concomitant]
     Indication: CARDIAC DISORDER

REACTIONS (2)
  - PROSTATECTOMY [None]
  - URINE FLOW DECREASED [None]
